FAERS Safety Report 6136417-7 (Version None)
Quarter: 2009Q1

REPORT INFORMATION
  Report Type: 
  Country: None (occurrence: None)
  Receive Date: 20090330
  Receipt Date: 20090327
  Transmission Date: 20090719
  Serious: Yes (Hospitalization)
  Sender: FDA-Public Use
  Company Number: US-BAYER-200814821BCC

PATIENT
  Age: 68 Year
  Sex: Female
  Weight: 61 kg

DRUGS (2)
  1. ALKA-SELTZER PLUS COLD EFFERVESCENT ORIGINAL [Suspect]
     Indication: NASOPHARYNGITIS
     Dosage: BOTTLE COUNT 20
     Route: 048
     Dates: start: 20081028, end: 20081028
  2. ADVAIR HFA [Concomitant]

REACTIONS (2)
  - DYSPNOEA [None]
  - SPEECH DISORDER [None]
